FAERS Safety Report 19330619 (Version 1)
Quarter: 2021Q2

REPORT INFORMATION
  Report Type: Spontaneous
  Country: US (occurrence: US)
  Receive Date: 20210528
  Receipt Date: 20210528
  Transmission Date: 20210717
  Serious: Yes (Hospitalization, Other)
  Sender: FDA-Public Use
  Company Number: US-FRESENIUS KABI-FK202105463

PATIENT
  Age: 41 Year
  Sex: Female

DRUGS (21)
  1. VASOPRESSIN. [Suspect]
     Active Substance: VASOPRESSIN
     Indication: HYPOTENSION
     Dosage: 0.04 UNITS/MIN; INFUSION
     Route: 065
  2. ACICLOVIR [Concomitant]
     Active Substance: ACYCLOVIR
     Indication: NECROTISING SOFT TISSUE INFECTION
     Route: 065
  3. DOPAMINE [Suspect]
     Active Substance: DOPAMINE HYDROCHLORIDE
     Indication: HYPOTENSION
     Dosage: 2.5 MICROG/KG/MIN; INFUSION
     Route: 065
  4. ANGIOTENSIN II [Suspect]
     Active Substance: ANGIOTENSIN II
     Indication: HYPOTENSION
     Dosage: 40 NG/KG/MIN; INFUSION
     Route: 065
  5. VANCOMYCIN [Concomitant]
     Active Substance: VANCOMYCIN
     Indication: MENINGITIS
  6. EPINEPHRINE. [Suspect]
     Active Substance: EPINEPHRINE
     Indication: HYPOTENSION
     Dosage: 0.5 MICROG/KG/MIN; INFUSION
     Route: 065
  7. CEFEPIME [Concomitant]
     Active Substance: CEFEPIME HYDROCHLORIDE
     Indication: MENINGITIS
  8. CLINDAMYCIN. [Concomitant]
     Active Substance: CLINDAMYCIN
     Indication: MENINGITIS
  9. IMMUNOGLOBULINS NOS [Concomitant]
     Active Substance: IMMUNE GLOBULIN NOS
     Indication: TOXIC SHOCK SYNDROME STREPTOCOCCAL
     Route: 065
  10. STEROIDS [Concomitant]
     Active Substance: UNSPECIFIED INGREDIENT
     Indication: PRODUCT USED FOR UNKNOWN INDICATION
     Dosage: UNSPECIFIED STRESS?DOSE STEROIDS
     Route: 065
  11. ACICLOVIR [Concomitant]
     Active Substance: ACYCLOVIR
     Indication: MENINGITIS
  12. BENZYLPENICILLIN POTASSIUM [Concomitant]
     Active Substance: PENICILLIN G POTASSIUM
     Indication: TOXIC SHOCK SYNDROME STREPTOCOCCAL
     Dosage: HIGH?DOSE
     Route: 065
  13. CEFEPIME [Concomitant]
     Active Substance: CEFEPIME HYDROCHLORIDE
     Indication: NECROTISING SOFT TISSUE INFECTION
     Route: 065
  14. FLUCONAZOLE. [Concomitant]
     Active Substance: FLUCONAZOLE
     Indication: NECROTISING SOFT TISSUE INFECTION
     Route: 065
  15. FLUCONAZOLE. [Concomitant]
     Active Substance: FLUCONAZOLE
     Indication: MENINGITIS
  16. CLINDAMYCIN. [Concomitant]
     Active Substance: CLINDAMYCIN
     Indication: TOXIC SHOCK SYNDROME STREPTOCOCCAL
     Dosage: HIGH?DOSE
     Route: 065
  17. VANCOMYCIN [Concomitant]
     Active Substance: VANCOMYCIN
     Indication: NECROTISING SOFT TISSUE INFECTION
     Route: 065
  18. CLINDAMYCIN. [Concomitant]
     Active Substance: CLINDAMYCIN
     Indication: NECROTISING SOFT TISSUE INFECTION
     Route: 065
  19. AMPICILLIN [Concomitant]
     Active Substance: AMPICILLIN
     Indication: MENINGITIS
  20. NORADRENALINE (MANUFACTURER UNKNOWN) [Suspect]
     Active Substance: NOREPINEPHRINE
     Indication: HYPOTENSION
     Dosage: 0.3 MICROG/KG/MIN; INFUSION
     Route: 065
  21. AMPICILLIN [Concomitant]
     Active Substance: AMPICILLIN
     Indication: NECROTISING SOFT TISSUE INFECTION
     Route: 065

REACTIONS (6)
  - Renal infarct [Unknown]
  - Splenic infarction [Unknown]
  - Extremity necrosis [Unknown]
  - Peripheral ischaemia [Unknown]
  - Deep vein thrombosis [Unknown]
  - Livedo reticularis [Unknown]
